FAERS Safety Report 6814342-3 (Version None)
Quarter: 2010Q3

REPORT INFORMATION
  Report Type: 
  Country: None (occurrence: None)
  Receive Date: 20100702
  Receipt Date: 20100624
  Transmission Date: 20110219
  Serious: Yes (Other)
  Sender: FDA-Public Use
  Company Number: US-JNJCH-2010015171

PATIENT
  Age: 22 Year
  Sex: Female
  Weight: 56.7 kg

DRUGS (2)
  1. LISTERINE WHITENING QUICK DISSOLVING STRIPS [Suspect]
     Indication: DENTAL CARE
     Dosage: TEXT:ONE STRIP ONCE
     Route: 048
     Dates: start: 20100620, end: 20100620
  2. LOW-OGESTREL-21 [Concomitant]
     Indication: CONTRACEPTION
     Dosage: TEXT:ONE 1X A DAY
     Route: 048

REACTIONS (1)
  - APPLICATION SITE BURN [None]
